FAERS Safety Report 8712888 (Version 3)
Quarter: 2012Q4

REPORT INFORMATION
  Report Type: 
  Country: FR (occurrence: FR)
  Receive Date: 20120808
  Receipt Date: 20121010
  Transmission Date: 20130627
  Serious: Yes (Hospitalization, Other)
  Sender: FDA-Public Use
  Company Number: PHHY2012FR067148

PATIENT
  Age: 48 Year
  Sex: Male

DRUGS (3)
  1. NEORAL [Suspect]
     Indication: LIVER TRANSPLANT
     Dosage: 300 mg, BID
     Dates: start: 201204
  2. CELLCEPT [Concomitant]
     Dosage: 500 mg, TID
  3. SOLUPRED [Concomitant]
     Dosage: 10 mg, QD
     Route: 048

REACTIONS (4)
  - Renal failure [Recovered/Resolved]
  - Hallucination, visual [Recovered/Resolved]
  - Overdose [Unknown]
  - Oral administration complication [Unknown]
